FAERS Safety Report 25206730 (Version 1)
Quarter: 2025Q2

REPORT INFORMATION
  Report Type: Spontaneous
  Country: MA (occurrence: MA)
  Receive Date: 20250417
  Receipt Date: 20250417
  Transmission Date: 20250716
  Serious: Yes (Hospitalization)
  Sender: ASTELLAS
  Company Number: MA-ASTELLAS-2025-AER-020384

PATIENT
  Sex: Male

DRUGS (3)
  1. TACROLIMUS [Suspect]
     Active Substance: TACROLIMUS
     Indication: Renal transplant
     Route: 065
     Dates: start: 2016
  2. MYCOPHENOLATE MOFETIL [Concomitant]
     Active Substance: MYCOPHENOLATE MOFETIL
     Indication: Renal transplant
     Route: 065
     Dates: start: 2016
  3. BASILIXIMAB [Concomitant]
     Active Substance: BASILIXIMAB
     Indication: Renal transplant
     Route: 065
     Dates: start: 2016

REACTIONS (3)
  - Lymphocele [Recovered/Resolved]
  - Parvimonas micra infection [Recovered/Resolved]
  - Staphylococcal infection [Recovered/Resolved]

NARRATIVE: CASE EVENT DATE: 20160101
